FAERS Safety Report 8477784-9 (Version None)
Quarter: 2012Q2

REPORT INFORMATION
  Report Type: 
  Country: None (occurrence: None)
  Receive Date: 20120629
  Receipt Date: 20120430
  Transmission Date: 20120825
  Serious: No
  Sender: FDA-Public Use
  Company Number: US-GLAXOSMITHKLINE-A0975734A

PATIENT
  Age: 31 Year
  Sex: Female

DRUGS (4)
  1. VENTOLIN [Suspect]
     Indication: BRONCHITIS
     Dosage: 2PUFF THREE TIMES PER DAY
     Route: 055
     Dates: start: 20120430, end: 20120430
  2. ACETAMINOPHEN [Concomitant]
  3. AMOXICILLIN [Concomitant]
  4. MUCINEX DM [Concomitant]

REACTIONS (8)
  - HYPERSENSITIVITY [None]
  - PARAESTHESIA [None]
  - FEELING ABNORMAL [None]
  - PALPITATIONS [None]
  - COORDINATION ABNORMAL [None]
  - ASTHENIA [None]
  - DIZZINESS POSTURAL [None]
  - FATIGUE [None]
